FAERS Safety Report 6353998-9 (Version None)
Quarter: 2009Q3

REPORT INFORMATION
  Report Type: 
  Country: None (occurrence: None)
  Receive Date: 20090914
  Receipt Date: 20090908
  Transmission Date: 20100115
  Serious: Yes (Other)
  Sender: FDA-Public Use
  Company Number: US-ASTRAZENECA-2009UW09189

PATIENT
  Age: 55 Year
  Sex: Female

DRUGS (3)
  1. SEROQUEL [Suspect]
     Indication: SCHIZOPHRENIA
     Dosage: 100 TO 300 MG
     Route: 048
     Dates: start: 19990101, end: 20080901
  2. ZYPREXA [Concomitant]
     Dates: start: 19970101, end: 19990101
  3. RISPERDAL [Concomitant]
     Dates: start: 20080101, end: 20090101

REACTIONS (3)
  - DIABETIC NEPHROPATHY [None]
  - TARDIVE DYSKINESIA [None]
  - TYPE 2 DIABETES MELLITUS [None]
